FAERS Safety Report 6341452-X (Version None)
Quarter: 2009Q3

REPORT INFORMATION
  Report Type: 
  Country: None (occurrence: None)
  Receive Date: 20090902
  Receipt Date: 20090902
  Transmission Date: 20100115
  Serious: No
  Sender: FDA-Public Use
  Company Number: None

PATIENT
  Sex: Female
  Weight: 65.5 kg

DRUGS (9)
  1. LEVETIRACETAM [Suspect]
     Indication: CONVULSION
     Dosage: PO
     Dates: start: 20090122, end: 20090715
  2. LEVETIRACETAM [Suspect]
     Indication: CONVULSION
     Dosage: PO
     Dates: start: 20090716
  3. LEVETIRACETAM [Suspect]
     Indication: CONVULSION
     Dosage: PO
     Dates: start: 20090801
  4. VICODIN [Concomitant]
  5. HYDROCODONE BITARTRATE W/IBUPROFEN [Concomitant]
  6. DOCUSATE SODIUM [Concomitant]
  7. IBUPROFEN [Concomitant]
  8. AUGMENTIN [Concomitant]
  9. WARFARIN SODIUM [Concomitant]

REACTIONS (2)
  - CONVULSION [None]
  - POSTICTAL STATE [None]
